FAERS Safety Report 7198793-6 (Version None)
Quarter: 2010Q4

REPORT INFORMATION
  Report Type: 
  Country: None (occurrence: None)
  Receive Date: 20101227
  Receipt Date: 20100827
  Transmission Date: 20110411
  Serious: Yes (Disabling)
  Sender: FDA-Public Use
  Company Number: GB-SANOFI-AVENTIS-2010SA051001

PATIENT
  Age: 72 Year
  Sex: Female
  Weight: 57.5 kg

DRUGS (1)
  1. PLAQUENIL [Suspect]
     Indication: CREST SYNDROME
     Route: 065
     Dates: start: 20100422, end: 20100712

REACTIONS (3)
  - BLISTER [None]
  - URTICARIA [None]
  - VASCULITIS [None]
